FAERS Safety Report 7181169-5 (Version None)
Quarter: 2010Q4

REPORT INFORMATION
  Report Type: 
  Country: None (occurrence: None)
  Receive Date: 20101221
  Receipt Date: 20101215
  Transmission Date: 20110411
  Serious: Yes (Other)
  Sender: FDA-Public Use
  Company Number: BR-PFIZER INC-2010172949

PATIENT
  Age: 40 Year
  Sex: Female
  Weight: 68 kg

DRUGS (13)
  1. FRONTAL [Suspect]
     Indication: TENSION
     Dosage: 2 MG, 3X/DAY
     Route: 048
     Dates: start: 20101101
  2. FRONTAL [Suspect]
     Indication: DEPRESSION
  3. FRONTAL [Suspect]
     Indication: PHOBIA
  4. FRONTAL [Suspect]
     Indication: SLEEP DISORDER
  5. FRONTAL [Suspect]
     Indication: SOCIAL PHOBIA
  6. PAMELOR [Concomitant]
     Indication: ANXIETY
     Dosage: 10 MG, UNK
     Dates: start: 20101101
  7. PAMELOR [Concomitant]
     Indication: STRESS
  8. CITALOPRAM [Concomitant]
     Indication: ANXIETY
     Dosage: 40 MG, UNK
     Dates: start: 20101101
  9. CITALOPRAM [Concomitant]
     Indication: STRESS
  10. MIRTAZAPINE [Concomitant]
     Indication: SLEEP DISORDER
     Dosage: UNK
     Dates: start: 20101101
  11. FORASEQ [Concomitant]
     Indication: ASTHMA
     Dosage: UNK
     Dates: start: 20080101
  12. FORMOTEROL W/BUDESONIDE [Concomitant]
     Indication: ASTHMA
     Dosage: UNK
     Dates: start: 20080101
  13. FORMOTEROL FUMARATE [Concomitant]
     Indication: ASTHMA
     Dosage: UNK
     Dates: start: 20050101

REACTIONS (9)
  - ABDOMINAL DISCOMFORT [None]
  - DYSPEPSIA [None]
  - FORMICATION [None]
  - HEADACHE [None]
  - MOUTH INJURY [None]
  - NAUSEA [None]
  - PARAESTHESIA [None]
  - VOMITING [None]
  - WITHDRAWAL SYNDROME [None]
